FAERS Safety Report 14254211 (Version 13)
Quarter: 2018Q1

REPORT INFORMATION
  Report Type: Report from Study
  Country: DE (occurrence: DE)
  Receive Date: 20171206
  Receipt Date: 20180328
  Transmission Date: 20180508
  Serious: Yes (Hospitalization, Other)
  Sender: FDA-Public Use
  Company Number: DE-CONCORDIA PHARMACEUTICALS INC.-E2B_00008577

PATIENT
  Sex: Male

DRUGS (18)
  1. DOXORUBICINE [Suspect]
     Active Substance: DOXORUBICIN
     Indication: B-CELL LYMPHOMA
     Dosage: 95 MG, UNK (1 TIME A DAY FOR 1 DAY)
     Route: 042
     Dates: start: 20171108
  2. DOXORUBICINE [Suspect]
     Active Substance: DOXORUBICIN
     Dosage: DATE OF LAST DOSE OF A PRIOR TO SERIOUS ADVERSE EVENT (SAE): 07/DEC/2017
     Route: 042
     Dates: start: 20171012, end: 20171012
  3. VINCRISTINE [Suspect]
     Active Substance: VINCRISTINE
     Indication: B-CELL LYMPHOMA
     Dosage: 3.12 MG, UNK (1 TIME A DAY FOR 1 DAY)
     Route: 042
     Dates: start: 20171012, end: 20171012
  4. ASPIRIN. [Concomitant]
     Active Substance: ASPIRIN
     Indication: PROPHYLAXIS
     Dosage: 100 MG, QD
     Route: 048
     Dates: start: 20171010
  5. LISINOPRIL. [Concomitant]
     Active Substance: LISINOPRIL
     Indication: ANGIOTENSIN CONVERTING ENZYME DECREASED
     Dosage: 20 MG, QD
     Route: 048
     Dates: start: 20171010
  6. TAMSULOSIN [Concomitant]
     Active Substance: TAMSULOSIN
     Indication: BENIGN PROSTATIC HYPERPLASIA
     Dosage: 4 MG, QD
     Route: 048
     Dates: start: 20171010
  7. CYCLOPHOSPHAMIDE. [Suspect]
     Active Substance: CYCLOPHOSPHAMIDE
     Indication: B-CELL LYMPHOMA
     Dosage: 1400 MG, UNK (1 TIME A DAY FOR 1 DAY)
     Route: 042
     Dates: start: 20171108
  8. PEGFILGRASTIM [Suspect]
     Active Substance: PEGFILGRASTIM
     Indication: B-CELL LYMPHOMA
     Dosage: 6 MG, QD
     Route: 058
     Dates: start: 20171111
  9. SIMVASTATIN. [Concomitant]
     Active Substance: SIMVASTATIN
     Indication: HYPERCHOLESTEROLAEMIA
     Dosage: 20 MG, QD
     Route: 048
     Dates: start: 20171010
  10. RITUXIMAB. [Suspect]
     Active Substance: RITUXIMAB
     Dosage: 660 MG, QD (1 TIME A DAY FOR 1 DAY); DATE OF LAST DOSE OF A PRIOR TO SERIOUS ADVERSE EVENT (SAE): 06
     Route: 042
     Dates: start: 20171011, end: 20171011
  11. PEGFILGRASTIM [Suspect]
     Active Substance: PEGFILGRASTIM
     Dosage: 6 MG, QD
     Route: 058
     Dates: start: 20171015, end: 20171015
  12. PREDNISOLONE. [Suspect]
     Active Substance: PREDNISOLONE
     Indication: B-CELL LYMPHOMA
     Dosage: 500 MG, QD (1-0-0, FOR 5 DAYS)
     Route: 048
     Dates: start: 20171107
  13. TAMSULOSIN [Concomitant]
     Active Substance: TAMSULOSIN
     Dosage: 20 MG, QD; 100 MG, QD
  14. ZOPICLONE [Concomitant]
     Active Substance: ZOPICLONE
     Indication: SLEEP DISORDER THERAPY
     Dosage: 7.5 MG, QD; 100 MG, QD
     Route: 048
     Dates: start: 20171010
  15. PREDNISOLONE. [Suspect]
     Active Substance: PREDNISOLONE
     Dosage: UNK, QD, DATE OF LAST DOSE OF A PRIOR TO SERIOUS ADVERSE EVENT (SAE): 07/DEC/2017 (1 IN 1 D)
     Route: 042
     Dates: start: 20171012, end: 20171012
  16. RITUXIMAB. [Suspect]
     Active Substance: RITUXIMAB
     Indication: B-CELL LYMPHOMA
     Dosage: 660 MG, UNK (1 TIME A DAY FOR 1 DAY); MOST RECENT CYCLE NUMBER: 3 DATE LAST RITUXIMAB GIVEN PRIOR TO
     Route: 042
     Dates: start: 20171107, end: 20171107
  17. RITUXIMAB. [Suspect]
     Active Substance: RITUXIMAB
     Route: 065
     Dates: start: 20171206
  18. CYCLOPHOSPHAMIDE. [Suspect]
     Active Substance: CYCLOPHOSPHAMIDE
     Dosage: UNK, QD, DATE OF LAST DOSE OF A PRIOR TO SERIOUS ADVERSE EVENT (SAE): 07/DEC/2017 (1 IN 1 D)
     Route: 042
     Dates: start: 20171012, end: 20171012

REACTIONS (3)
  - Bronchitis [Not Recovered/Not Resolved]
  - Lung infection [Not Recovered/Not Resolved]
  - Anaemia [Recovering/Resolving]

NARRATIVE: CASE EVENT DATE: 20171024
